FAERS Safety Report 18992297 (Version 1)
Quarter: 2021Q1

REPORT INFORMATION
  Report Type: Spontaneous
  Country: US (occurrence: US)
  Receive Date: 20210310
  Receipt Date: 20210310
  Transmission Date: 20210420
  Serious: Yes (Disabling)
  Sender: FDA-Public Use
  Company Number: None

PATIENT
  Age: 4 Year
  Sex: Female
  Weight: 14.4 kg

DRUGS (3)
  1. MIRALAX [Suspect]
     Active Substance: POLYETHYLENE GLYCOL 3350
     Indication: CONSTIPATION
     Route: 048
     Dates: start: 20171001, end: 20210210
  2. GARDEN OF LIFE CHILDREN^S PROBIOTIC [Concomitant]
  3. SMARTY PANTS GUMMY MULTIVITAMIN FOR CHILDREN [Concomitant]

REACTIONS (5)
  - Insomnia [None]
  - Abdominal pain upper [None]
  - Dysphemia [None]
  - Language disorder [None]
  - Anger [None]

NARRATIVE: CASE EVENT DATE: 20210201
